FAERS Safety Report 8829150 (Version 1)
Quarter: 2012Q4

REPORT INFORMATION
  Report Type: Spontaneous
  Country: US (occurrence: None)
  Receive Date: 20121005
  Receipt Date: 20121005
  Transmission Date: 20130627
  Serious: No
  Sender: FDA-Public Use
  Company Number: None

PATIENT
  Age: 57 Year
  Sex: Female
  Weight: 77.11 kg

DRUGS (1)
  1. CLARINEX [Suspect]
     Dosage: 1 5mg daily Oral
     Route: 048
     Dates: start: 2007, end: 2012

REACTIONS (2)
  - Arthralgia [None]
  - Pain in extremity [None]
